FAERS Safety Report 8274113-0 (Version None)
Quarter: 2012Q2

REPORT INFORMATION
  Report Type: 
  Country: None (occurrence: None)
  Receive Date: 20120411
  Receipt Date: 20120406
  Transmission Date: 20120825
  Serious: Yes (Hospitalization, Other)
  Sender: FDA-Public Use
  Company Number: IT-PFIZER INC-2012088755

PATIENT
  Age: 88 Year
  Sex: Female

DRUGS (7)
  1. CEFPODOXIME PROXETIL [Suspect]
     Indication: INFLUENZA
     Dosage: 200 MG, DAILY
     Route: 048
     Dates: start: 20120317, end: 20120319
  2. VALSARTAN [Concomitant]
  3. MAGNESIUM HYDROXIDE TAB [Concomitant]
  4. TOLIMAN [Suspect]
     Indication: PARAESTHESIA
     Dosage: 30 DROPS DAILY
     Route: 048
     Dates: start: 20120317, end: 20120319
  5. TORSEMIDE [Concomitant]
  6. MEDROL [Suspect]
     Indication: MUSCULOSKELETAL PAIN
     Dosage: 8 MG, DAILY
     Dates: start: 20120317, end: 20120319
  7. ALLOPURINOLO SANDOZ [Concomitant]

REACTIONS (2)
  - TRANSAMINASES INCREASED [None]
  - CHOLESTASIS [None]
